FAERS Safety Report 9917628 (Version 1)
Quarter: 2014Q1

REPORT INFORMATION
  Report Type: Spontaneous
  Country: US (occurrence: US)
  Receive Date: 20140221
  Receipt Date: 20140221
  Transmission Date: 20141002
  Serious: No
  Sender: FDA-Public Use
  Company Number: US-GILEAD-2014-0095026

PATIENT
  Sex: Female

DRUGS (2)
  1. LETAIRIS [Suspect]
     Indication: PRODUCT USED FOR UNKNOWN INDICATION
     Dosage: 10 MG, QD
     Route: 048
     Dates: start: 20130326
  2. TYVASO [Concomitant]

REACTIONS (6)
  - Diarrhoea [Unknown]
  - Dry throat [Unknown]
  - Cough [Unknown]
  - Abdominal pain upper [Unknown]
  - Headache [Unknown]
  - Asthenia [Unknown]
